FAERS Safety Report 5605914-2 (Version None)
Quarter: 2008Q1

REPORT INFORMATION
  Report Type: 
  Country: None (occurrence: None)
  Receive Date: 20080129
  Receipt Date: 20080115
  Transmission Date: 20080703
  Serious: Yes (Hospitalization, Other)
  Sender: FDA-Public Use
  Company Number: US-AMGEN-QUU260879

PATIENT
  Sex: Female

DRUGS (2)
  1. ENBREL [Suspect]
     Indication: RHEUMATOID ARTHRITIS
     Route: 058
     Dates: start: 20030201
  2. ARAVA [Concomitant]
     Route: 048
     Dates: start: 20070701

REACTIONS (3)
  - FINGER DEFORMITY [None]
  - MUSCULAR WEAKNESS [None]
  - UMBILICAL HERNIA [None]
